FAERS Safety Report 10166927 (Version 1)
Quarter: 2014Q2

REPORT INFORMATION
  Report Type: Spontaneous
  Country: US (occurrence: US)
  Receive Date: 20140512
  Receipt Date: 20140512
  Transmission Date: 20141212
  Serious: No
  Sender: FDA-Public Use
  Company Number: US-PFIZER INC-2014125769

PATIENT
  Age: 74 Year
  Sex: Male
  Weight: 87.98 kg

DRUGS (10)
  1. CELEBREX [Suspect]
     Indication: ARTHRITIS
     Dosage: 200 MG, 1X/DAY
     Route: 048
     Dates: start: 201404, end: 201405
  2. CELEBREX [Suspect]
     Indication: ARTHRALGIA
     Dosage: 100 MG, 1X/DAY
     Route: 048
     Dates: start: 20140506
  3. GLIPIZIDE [Concomitant]
     Indication: DIABETES MELLITUS
     Dosage: UNK
  4. LOVASTATIN [Concomitant]
     Dosage: 20 MG, UNK
  5. LEVOTHYROXINE [Concomitant]
     Dosage: 100 UG, UNK
  6. POTASSIUM [Concomitant]
     Dosage: 10 MG, 1X/DAY
  7. HYDROCHLOROTHIAZIDE [Concomitant]
     Dosage: 25 MG, 1X/DAY
  8. NIFEDIPINE [Concomitant]
     Dosage: 30 MG, UNK
  9. ATENOLOL [Concomitant]
     Dosage: UNK
  10. LISINOPRIL [Concomitant]
     Dosage: 10 MG, UNK

REACTIONS (3)
  - Blood glucose decreased [Recovered/Resolved]
  - White blood cell count increased [Unknown]
  - Drug ineffective [Unknown]
